FAERS Safety Report 4764215-5 (Version None)
Quarter: 2005Q3

REPORT INFORMATION
  Report Type: 
  Country: None (occurrence: None)
  Receive Date: 20050906
  Receipt Date: 20050607
  Transmission Date: 20060218
  Serious: No
  Sender: FDA-Public Use
  Company Number: 2005-BP-09423BP

PATIENT
  Age: 87 Year
  Sex: Male

DRUGS (11)
  1. SPIRIVA [Suspect]
     Indication: CHRONIC OBSTRUCTIVE PULMONARY DISEASE
     Dosage: 18 MCG (18 MCG, QD) IH
     Route: 055
     Dates: start: 20050301, end: 20050606
  2. VITAMIN C (ASCORBIC ACID) [Concomitant]
  3. CENTRUM SILVER [Concomitant]
  4. ZETIA (EZETIMBE) [Concomitant]
  5. SYNTHROID [Concomitant]
  6. FLOMAX [Concomitant]
  7. ZINC [Concomitant]
  8. SELENIUM SULFIDE [Concomitant]
  9. ACETYLSALICYLIC ACID SRT [Concomitant]
  10. LIPITOR [Concomitant]
  11. AGGRENOX [Concomitant]

REACTIONS (2)
  - CONSTIPATION [None]
  - URINARY RETENTION [None]
